FAERS Safety Report 12262164 (Version 1)
Quarter: 2016Q2

REPORT INFORMATION
  Report Type: Spontaneous
  Country: US (occurrence: None)
  Receive Date: 20160412
  Receipt Date: 20160412
  Transmission Date: 20160815
  Serious: No
  Sender: FDA-Public Use
  Company Number: None

PATIENT
  Age: 35 Year
  Sex: Female
  Weight: 60.78 kg

DRUGS (3)
  1. AMOXICILIN/CLAVULANIC ACID, 125MG [Suspect]
     Active Substance: AMOXICILLIN\CLAVULANIC ACID
     Indication: BACTERIAL INFECTION
     Route: 048
     Dates: start: 20160408, end: 20160409
  2. ALLEGRA-D [Concomitant]
     Active Substance: FEXOFENADINE\PSEUDOEPHEDRINE
  3. ADVIL [Concomitant]
     Active Substance: IBUPROFEN

REACTIONS (15)
  - Fatigue [None]
  - Pyrexia [None]
  - Dizziness [None]
  - Gastrointestinal sounds abnormal [None]
  - Influenza like illness [None]
  - Chills [None]
  - Pain of skin [None]
  - Abdominal discomfort [None]
  - Pollakiuria [None]
  - Feeling abnormal [None]
  - Muscular weakness [None]
  - Diarrhoea [None]
  - Myalgia [None]
  - Migraine [None]
  - Nausea [None]

NARRATIVE: CASE EVENT DATE: 20160409
